FAERS Safety Report 17019798 (Version 1)
Quarter: 2019Q4

REPORT INFORMATION
  Report Type: Report from Study
  Country: US (occurrence: US)
  Receive Date: 20191112
  Receipt Date: 20191112
  Transmission Date: 20200122
  Serious: Yes (Other)
  Sender: FDA-Public Use
  Company Number: US-BTG-201900172

PATIENT
  Age: 44 Year
  Sex: Male

DRUGS (3)
  1. ANAVIP [Suspect]
     Active Substance: PIT VIPER (CROTALINAE) IMMUNE GLOBULIN ANTIVENIN (EQUINE)
     Indication: SNAKE BITE
     Dosage: A TOTAL OF 30 VIALS
     Route: 065
  2. CROFAB [Suspect]
     Active Substance: CROTALIDAE POLYVALENT IMMUNE FAB (OVINE)
     Indication: SNAKE BITE
     Dosage: INITIAL SIX (6) VIALS
     Route: 065
  3. CROFAB [Suspect]
     Active Substance: CROTALIDAE POLYVALENT IMMUNE FAB (OVINE)
     Indication: SNAKE BITE
     Dosage: ADDITIONAL ONE (1) VIAL
     Route: 065

REACTIONS (6)
  - Rash [Unknown]
  - Erythema [Unknown]
  - Prothrombin time prolonged [Unknown]
  - Urticaria [Unknown]
  - Thrombocytopenia [Unknown]
  - Blood fibrinogen decreased [Unknown]
